FAERS Safety Report 16900873 (Version 1)
Quarter: 2019Q4

REPORT INFORMATION
  Report Type: Spontaneous
  Country: US (occurrence: US)
  Receive Date: 20191009
  Receipt Date: 20191009
  Transmission Date: 20200122
  Serious: No
  Sender: FDA-Public Use
  Company Number: US-ALKERMES INC.-ALK-2018-006891

PATIENT
  Age: 24 Year
  Sex: Male
  Weight: 72.56 kg

DRUGS (2)
  1. ARISTADA [Suspect]
     Active Substance: ARIPIPRAZOLE LAUROXIL
     Indication: SCHIZOPHRENIA
     Dosage: 662 MG, QMO
     Route: 030
     Dates: start: 20171130
  2. METH-ZINE [Concomitant]
     Indication: PRODUCT USED FOR UNKNOWN INDICATION

REACTIONS (4)
  - Substance abuse [Unknown]
  - Abnormal behaviour [Recovered/Resolved]
  - Malaise [Recovered/Resolved]
  - Schizophrenia [Recovered/Resolved]

NARRATIVE: CASE EVENT DATE: 20181212
